FAERS Safety Report 4330496-5 (Version None)
Quarter: 2004Q2

REPORT INFORMATION
  Report Type: 
  Country: None (occurrence: None)
  Receive Date: 20040401
  Receipt Date: 20040401
  Transmission Date: 20050107
  Serious: Yes (Hospitalization)
  Sender: FDA-Public Use
  Company Number: None

PATIENT
  Age: 53 Year
  Sex: Male

DRUGS (1)
  1. ENOXAPARIN SODIUM [Suspect]
     Indication: ATRIAL FIBRILLATION
     Dosage: 90 MG       BID  SUB
     Route: 058
     Dates: start: 20031127, end: 20031201

REACTIONS (3)
  - DYSPHAGIA [None]
  - HAEMATOMA [None]
  - NERVOUS SYSTEM DISORDER [None]
